FAERS Safety Report 16213410 (Version 1)
Quarter: 2019Q2

REPORT INFORMATION
  Report Type: Report from Study
  Country: CA (occurrence: CA)
  Receive Date: 20190418
  Receipt Date: 20190418
  Transmission Date: 20190711
  Serious: Yes (Other)
  Sender: FDA-Public Use
  Company Number: CA-TEVA-2019-CA-1038572

PATIENT
  Age: 61 Year
  Sex: Female

DRUGS (3)
  1. LOMUSTINE. [Suspect]
     Active Substance: LOMUSTINE
     Indication: ASTROCYTOMA
     Dosage: RECEIVED 3 CYCLES OF THE THERAPY
     Route: 065
     Dates: start: 201603, end: 201607
  2. PROCARBAZINE [Suspect]
     Active Substance: PROCARBAZINE
     Indication: ASTROCYTOMA
     Dosage: RECEIVED 3 CYCLES OF THE THERAPY
     Route: 065
     Dates: start: 201603, end: 201607
  3. VINCRISTINE [Suspect]
     Active Substance: VINCRISTINE
     Indication: ASTROCYTOMA
     Dosage: RECEIVED 3 CYCLES OF THE THERAPY
     Route: 065
     Dates: start: 201603, end: 201607

REACTIONS (1)
  - Tumour pseudoprogression [Recovering/Resolving]
